FAERS Safety Report 23244355 (Version 1)
Quarter: 2023Q4

REPORT INFORMATION
  Report Type: Spontaneous
  Country: IR (occurrence: IR)
  Receive Date: 20231130
  Receipt Date: 20231130
  Transmission Date: 20240110
  Serious: Yes (Other)
  Sender: FDA-Public Use
  Company Number: IR-ALKEM LABORATORIES LIMITED-IR-ALKEM-2023-14703

PATIENT
  Age: 50 Year
  Sex: Male

DRUGS (2)
  1. LIDOCAINE [Suspect]
     Active Substance: LIDOCAINE
     Indication: Anaesthesia
     Dosage: UNK (0.5 CUBIC CENTIMETER)
  2. LIDOCAINE [Suspect]
     Active Substance: LIDOCAINE
     Dosage: UNK (HYDRODELINEATION WITH 0.5 CC-UNPRESERVED)

REACTIONS (2)
  - Blindness transient [Recovered/Resolved]
  - Posterior capsule rupture [Recovered/Resolved]
